FAERS Safety Report 8081385-4 (Version None)
Quarter: 2012Q1

REPORT INFORMATION
  Report Type: 
  Country: None (occurrence: None)
  Receive Date: 20120130
  Receipt Date: 20120123
  Transmission Date: 20120608
  Serious: Yes (Death, Hospitalization)
  Sender: FDA-Public Use
  Company Number: FR-GENZYME-CAMP-1001041

PATIENT
  Sex: Male

DRUGS (3)
  1. CAMPATH [Suspect]
     Indication: MYCOSIS FUNGOIDES
     Dosage: UNK
     Route: 065
     Dates: start: 20100503, end: 20100503
  2. CAMPATH [Suspect]
     Dosage: UNK
     Route: 065
     Dates: start: 20100614, end: 20100614
  3. CAMPATH [Suspect]
     Dosage: UNK
     Route: 065
     Dates: start: 20100607, end: 20100607

REACTIONS (6)
  - PYREXIA [None]
  - RASH ERYTHEMATOUS [None]
  - DECREASED APPETITE [None]
  - DISEASE PROGRESSION [None]
  - VOMITING [None]
  - CHILLS [None]
